FAERS Safety Report 7367690-5 (Version None)
Quarter: 2011Q1

REPORT INFORMATION
  Report Type: 
  Country: None (occurrence: None)
  Receive Date: 20110307
  Receipt Date: 20110128
  Transmission Date: 20110831
  Serious: Yes (Other)
  Sender: FDA-Public Use
  Company Number: 2011SP004653

PATIENT
  Age: 21 Year
  Sex: Female

DRUGS (1)
  1. MIRTAZAPINE [Suspect]
     Indication: DEPRESSION
     Dosage: 7.5 MG, QD, PO
     Route: 048
     Dates: start: 20101105, end: 20101208

REACTIONS (3)
  - TREMOR [None]
  - LIVER FUNCTION TEST ABNORMAL [None]
  - DYSPNOEA [None]
